FAERS Safety Report 5654301-X (Version None)
Quarter: 2008Q1

REPORT INFORMATION
  Report Type: 
  Country: None (occurrence: None)
  Receive Date: 20080305
  Receipt Date: 20080219
  Transmission Date: 20080703
  Serious: Yes (Life-Threatening, Hospitalization)
  Sender: FDA-Public Use
  Company Number: ADE# 08-023

PATIENT
  Age: 23 Year
  Sex: Male

DRUGS (3)
  1. ZOLPIDEM TARTRATE [Suspect]
     Dates: start: 20080117, end: 20080119
  2. SERTRALINE [Concomitant]
  3. BUPROPION HCL [Concomitant]

REACTIONS (1)
  - MULTIPLE DRUG OVERDOSE [None]
